FAERS Safety Report 25906230 (Version 1)
Quarter: 2025Q4

REPORT INFORMATION
  Report Type: Spontaneous
  Country: US (occurrence: US)
  Receive Date: 20251010
  Receipt Date: 20251010
  Transmission Date: 20260119
  Serious: No
  Sender: SANOFI AVENTIS
  Company Number: US-SA-2025SA301316

PATIENT
  Sex: Female

DRUGS (9)
  1. DUPIXENT [Suspect]
     Active Substance: DUPILUMAB
     Indication: Dermatitis
     Dosage: 300 MG, QOW
     Route: 058
  2. XARELTO [Concomitant]
     Active Substance: RIVAROXABAN
  3. TRIAMCINOLONE ACETONIDE [Concomitant]
     Active Substance: TRIAMCINOLONE ACETONIDE
  4. SILVADENE [Concomitant]
     Active Substance: SILVER SULFADIAZINE
  5. MUPIROCIN [Concomitant]
     Active Substance: MUPIROCIN
  6. MONTELUKAST [Concomitant]
     Active Substance: MONTELUKAST
  7. DOXYCYCLINE [Concomitant]
     Active Substance: DOXYCYCLINE
  8. LEVETIRACETAM [Concomitant]
     Active Substance: LEVETIRACETAM
  9. CLOBETASOL [Concomitant]
     Active Substance: CLOBETASOL

REACTIONS (2)
  - Injection site discomfort [Unknown]
  - Product use in unapproved indication [Unknown]
